FAERS Safety Report 15942808 (Version 1)
Quarter: 2019Q1

REPORT INFORMATION
  Report Type: Spontaneous
  Country: FR (occurrence: FR)
  Receive Date: 20190210
  Receipt Date: 20190210
  Transmission Date: 20190417
  Serious: Yes (Life-Threatening)
  Sender: FDA-Public Use
  Company Number: PHHY2019FR028056

PATIENT
  Age: 52 Year
  Sex: Female

DRUGS (7)
  1. SERTRALINE [Suspect]
     Active Substance: SERTRALINE HYDROCHLORIDE
     Indication: SUICIDE ATTEMPT
     Dosage: 350 MG, TOTAL
     Route: 048
     Dates: start: 20190114, end: 20190114
  2. TERALITHE [Suspect]
     Active Substance: LITHIUM CARBONATE
     Indication: SUICIDE ATTEMPT
     Route: 048
  3. ZOPICLONE [Suspect]
     Active Substance: ZOPICLONE
     Indication: SUICIDE ATTEMPT
     Dosage: 202.5 MG, TOTAL
     Route: 048
     Dates: start: 20190114, end: 20190114
  4. THERALENE [Suspect]
     Active Substance: TRIMEPRAZINE
     Indication: SUICIDE ATTEMPT
     Dosage: 25 DF, TOTAL
     Route: 048
     Dates: start: 20190114, end: 20190114
  5. SERESTA [Suspect]
     Active Substance: OXAZEPAM
     Indication: SUICIDE ATTEMPT
     Dosage: 20 DF, TOTAL
     Route: 048
     Dates: start: 20190114, end: 20190114
  6. PARACETAMOL [Suspect]
     Active Substance: ACETAMINOPHEN
     Indication: SUICIDE ATTEMPT
     Dosage: 7 G, TOTAL
     Route: 048
     Dates: start: 20190114, end: 20190114
  7. QUETIAPINE. [Suspect]
     Active Substance: QUETIAPINE
     Indication: SUICIDE ATTEMPT
     Dosage: 7200 MG, TOTAL
     Route: 048
     Dates: start: 20190114, end: 20190114

REACTIONS (5)
  - Poisoning deliberate [Recovered/Resolved]
  - Coma [Recovering/Resolving]
  - Acute kidney injury [Recovered/Resolved]
  - Electrocardiogram QT prolonged [Recovered/Resolved]
  - Pneumonia aspiration [Recovering/Resolving]

NARRATIVE: CASE EVENT DATE: 20190114
